FAERS Safety Report 24966497 (Version 1)
Quarter: 2025Q1

REPORT INFORMATION
  Report Type: Spontaneous
  Country: US (occurrence: US)
  Receive Date: 20250213
  Receipt Date: 20250213
  Transmission Date: 20250409
  Serious: No
  Sender: Kenvue
  Company Number: US-KENVUE-20250107615

PATIENT
  Age: 44 Year
  Sex: Male

DRUGS (3)
  1. TYLENOL [Suspect]
     Active Substance: ACETAMINOPHEN
     Indication: Product used for unknown indication
     Route: 065
  2. AZITHROMYCIN [Concomitant]
     Active Substance: AZITHROMYCIN
     Indication: Mycobacterium abscessus infection
     Route: 065
  3. LINEZOLID [Concomitant]
     Active Substance: LINEZOLID
     Indication: Mycobacterium abscessus infection
     Route: 065

REACTIONS (4)
  - Restless legs syndrome [Unknown]
  - Fatigue [Unknown]
  - Anxiety [Unknown]
  - Hypersensitivity [Unknown]
